FAERS Safety Report 21578605 (Version 1)
Quarter: 2022Q4

REPORT INFORMATION
  Report Type: Spontaneous
  Country: FR (occurrence: FR)
  Receive Date: 20221110
  Receipt Date: 20221110
  Transmission Date: 20230113
  Serious: Yes (Other)
  Sender: FDA-Public Use
  Company Number: None

PATIENT
  Age: 73 Year
  Sex: Male

DRUGS (5)
  1. BENDAMUSTINE HYDROCHLORIDE [Suspect]
     Active Substance: BENDAMUSTINE HYDROCHLORIDE
     Indication: B-cell lymphoma
     Dosage: BENDAMUSTINE (CHLORHYDRATE DE) , UNIT DOSE : 320 MG   , FREQUENCY TIME : 1 MONTH  , DURATION : 139 D
     Route: 065
     Dates: start: 20201217, end: 20210505
  2. VALACYCLOVIR HYDROCHLORIDE [Suspect]
     Active Substance: VALACYCLOVIR HYDROCHLORIDE
     Indication: Infection prophylaxis
     Dosage: UNIT DOSE : 2 GRAM   , FREQUENCY TIME : 1 DAY  , DURATION :  1 YEARS
     Dates: start: 20200802, end: 202111
  3. LEUCOVORIN CALCIUM [Suspect]
     Active Substance: LEUCOVORIN CALCIUM
     Indication: Infection prophylaxis
     Dosage: FORM STRENGTH : 25 MG , UNIT DOSE : 1 DF  , FREQUENCY TIME : 1 WEEKS   , THERAPY END DATE : NASK
     Dates: start: 20210311
  4. BACTRIM [Suspect]
     Active Substance: SULFAMETHOXAZOLE\TRIMETHOPRIM
     Indication: Infection prophylaxis
     Dosage: UNIT DOSE :  3 DF , FREQUENCY TIME :  1 DAY  , DURATION :  8 MONTH
     Dates: start: 20210311, end: 202111
  5. RITUXIMAB [Suspect]
     Active Substance: RITUXIMAB
     Indication: B-cell lymphoma
     Dosage: RITUXIMAB ((MAMMAL/HAMSTER/CHO CELLS)) , UNIT DOSE : 700 MG   , FREQUENCY TIME :  4 WEEKS  , DURATIO
     Dates: start: 20200803, end: 20210506

REACTIONS (2)
  - Toxic skin eruption [Recovered/Resolved]
  - Eosinophilia [Recovered/Resolved]

NARRATIVE: CASE EVENT DATE: 20210401
